FAERS Safety Report 20973119 (Version 1)
Quarter: 2022Q2

REPORT INFORMATION
  Report Type: Spontaneous
  Country: JP (occurrence: JP)
  Receive Date: 20220617
  Receipt Date: 20220617
  Transmission Date: 20220721
  Serious: Yes (Hospitalization, Other)
  Sender: FDA-Public Use
  Company Number: JP-SAKK-2022SA209218AA

PATIENT
  Age: 70 Year
  Sex: Male

DRUGS (1)
  1. DUPIXENT [Suspect]
     Active Substance: DUPILUMAB
     Indication: Chronic eosinophilic rhinosinusitis
     Dosage: 300 MG, QOW
     Route: 058

REACTIONS (5)
  - Glomerulonephritis [Unknown]
  - Eosinophilic granulomatosis with polyangiitis [Recovered/Resolved]
  - Pain in extremity [Recovered/Resolved]
  - Dysaesthesia [Recovered/Resolved]
  - Purpura [Recovered/Resolved]

NARRATIVE: CASE EVENT DATE: 20220101
